FAERS Safety Report 6021613-X (Version None)
Quarter: 2008Q4

REPORT INFORMATION
  Report Type: 
  Country: None (occurrence: None)
  Receive Date: 20081229
  Receipt Date: 20081219
  Transmission Date: 20090506
  Serious: Yes (Hospitalization, Other)
  Sender: FDA-Public Use
  Company Number: JP-AVENTIS-200819934GDDC

PATIENT
  Age: 7 Year
  Sex: Female

DRUGS (44)
  1. DESMOPRESSIN ACETATE [Suspect]
     Indication: ENURESIS
     Route: 045
     Dates: start: 20080401, end: 20080405
  2. DESMOPRESSIN ACETATE [Suspect]
     Route: 045
     Dates: start: 20080406, end: 20080608
  3. DESMOPRESSIN ACETATE [Suspect]
     Route: 045
     Dates: start: 20080702, end: 20080810
  4. DESMOPRESSIN ACETATE [Suspect]
     Route: 045
     Dates: start: 20080821, end: 20081001
  5. TOFRANIL [Suspect]
     Indication: ENURESIS
     Route: 048
     Dates: start: 20080826, end: 20080904
  6. TOFRANIL [Suspect]
     Route: 048
     Dates: start: 20080905, end: 20080907
  7. TOFRANIL [Suspect]
     Route: 048
     Dates: start: 20081001, end: 20081001
  8. ERYTHROMYCIN [Concomitant]
     Dates: start: 20080402, end: 20080406
  9. ERYTHROMYCIN [Concomitant]
     Dates: start: 20080523, end: 20080528
  10. ERYTHROMYCIN [Concomitant]
     Dates: start: 20080728, end: 20080802
  11. CARBOCISTEINE [Concomitant]
     Route: 048
     Dates: start: 20080402, end: 20080406
  12. CARBOCISTEINE [Concomitant]
     Route: 048
     Dates: start: 20080408, end: 20080412
  13. CARBOCISTEINE [Concomitant]
     Route: 048
     Dates: start: 20080502, end: 20080507
  14. CARBOCISTEINE [Concomitant]
     Route: 048
     Dates: start: 20080523, end: 20080528
  15. CARBOCISTEINE [Concomitant]
     Route: 048
     Dates: start: 20080602, end: 20080606
  16. CARBOCISTEINE [Concomitant]
     Route: 048
     Dates: start: 20080611, end: 20080616
  17. CARBOCISTEINE [Concomitant]
     Route: 048
     Dates: start: 20080714, end: 20080719
  18. CARBOCISTEINE [Concomitant]
     Route: 048
     Dates: start: 20080728, end: 20080802
  19. CARBOCISTEINE [Concomitant]
     Route: 048
     Dates: start: 20080926, end: 20080930
  20. MEQUITAZINE [Concomitant]
     Route: 048
     Dates: start: 20080402, end: 20080406
  21. MEQUITAZINE [Concomitant]
     Route: 048
     Dates: start: 20080408, end: 20080412
  22. MEQUITAZINE [Concomitant]
     Route: 048
     Dates: start: 20080502, end: 20080507
  23. MEQUITAZINE [Concomitant]
     Route: 048
     Dates: start: 20080523, end: 20080528
  24. MEQUITAZINE [Concomitant]
     Route: 048
     Dates: start: 20080602, end: 20080606
  25. MEQUITAZINE [Concomitant]
     Route: 048
     Dates: start: 20080611, end: 20080616
  26. MEQUITAZINE [Concomitant]
     Route: 048
     Dates: start: 20080714, end: 20080719
  27. MEQUITAZINE [Concomitant]
     Route: 048
     Dates: start: 20080728, end: 20080802
  28. MEQUITAZINE [Concomitant]
     Route: 048
     Dates: start: 20080806, end: 20080811
  29. MEQUITAZINE [Concomitant]
     Route: 048
     Dates: start: 20080926, end: 20080930
  30. TIPEPIDINE HIBENZATE [Concomitant]
     Route: 048
     Dates: start: 20080402, end: 20080406
  31. TIPEPIDINE HIBENZATE [Concomitant]
     Route: 048
     Dates: start: 20080523, end: 20080528
  32. TIPEPIDINE HIBENZATE [Concomitant]
     Route: 048
     Dates: start: 20080714, end: 20080719
  33. CEFDITOREN PIVOXIL [Concomitant]
     Route: 048
     Dates: start: 20080611, end: 20080614
  34. CEFDITOREN PIVOXIL [Concomitant]
     Route: 048
     Dates: start: 20080714, end: 20080718
  35. CEFDITOREN PIVOXIL [Concomitant]
     Route: 048
     Dates: start: 20080926, end: 20080930
  36. LEBENIN [Concomitant]
     Route: 048
     Dates: start: 20080611, end: 20080614
  37. LEBENIN [Concomitant]
     Route: 048
     Dates: start: 20080714, end: 20080718
  38. LEBENIN [Concomitant]
     Route: 048
     Dates: start: 20080926, end: 20080930
  39. OXYBUTYNIN CHLORIDE [Concomitant]
     Route: 048
     Dates: start: 20080627, end: 20080710
  40. OXYBUTYNIN CHLORIDE [Concomitant]
     Route: 048
     Dates: start: 20080711, end: 20080810
  41. TRANEXAMIC ACID [Concomitant]
     Route: 048
     Dates: start: 20080714, end: 20080719
  42. ACETAMINOPHEN [Concomitant]
     Route: 048
     Dates: start: 20080714, end: 20080717
  43. ACETAMINOPHEN [Concomitant]
     Route: 048
     Dates: start: 20080926, end: 20080929
  44. GARASONE [Concomitant]
     Route: 061
     Dates: start: 20080806, end: 20080811

REACTIONS (12)
  - ABDOMINAL PAIN [None]
  - ALTERED STATE OF CONSCIOUSNESS [None]
  - CHEST DISCOMFORT [None]
  - COMA [None]
  - CONVULSION [None]
  - CRYING [None]
  - DIABETES INSIPIDUS [None]
  - DRUG EFFECT DECREASED [None]
  - DRUG INTERACTION [None]
  - HYPONATRAEMIA [None]
  - VOMITING [None]
  - WATER INTOXICATION [None]
